FAERS Safety Report 14539447 (Version 9)
Quarter: 2020Q4

REPORT INFORMATION
  Report Type: Report from Study
  Country: CO (occurrence: CO)
  Receive Date: 20180216
  Receipt Date: 20201026
  Transmission Date: 20210113
  Serious: Yes (Hospitalization, Other)
  Sender: FDA-Public Use
  Company Number: PHHY2017CO069455

PATIENT
  Age: 59 Year
  Sex: Female
  Weight: 82 kg

DRUGS (14)
  1. TYKERB [Suspect]
     Active Substance: LAPATINIB DITOSYLATE
     Dosage: 750 MG, QD
     Route: 048
  2. TYKERB [Suspect]
     Active Substance: LAPATINIB DITOSYLATE
     Dosage: 4 DF DAILY
     Route: 048
  3. TRASTUZUMAB. [Concomitant]
     Active Substance: TRASTUZUMAB
     Indication: BREAST CANCER
     Dosage: APPLIED EVERY 21 DAYS
     Route: 058
     Dates: start: 2014
  4. VITAMIN A [Concomitant]
     Active Substance: VITAMIN A
     Indication: PRODUCT USED FOR UNKNOWN INDICATION
     Route: 065
  5. TYKERB [Suspect]
     Active Substance: LAPATINIB DITOSYLATE
     Indication: BREAST CANCER
     Dosage: 1000 MG, QD
     Route: 048
     Dates: start: 20161207
  6. TYKERB [Suspect]
     Active Substance: LAPATINIB DITOSYLATE
     Dosage: 1000 MG, QD
     Route: 048
  7. BIOTIN [Concomitant]
     Active Substance: BIOTIN
     Indication: PRODUCT USED FOR UNKNOWN INDICATION
     Dosage: UNK
     Route: 065
  8. TYKERB [Suspect]
     Active Substance: LAPATINIB DITOSYLATE
     Dosage: 2 DF DAILY
     Route: 048
  9. LOSARTAN. [Suspect]
     Active Substance: LOSARTAN
     Indication: HYPERTENSION
     Dosage: 50 MG, Q12H (APPROX. 3 YEARS)
     Route: 048
  10. GAVISCON [Concomitant]
     Active Substance: ALUMINUM HYDROXIDE\MAGNESIUM CARBONATE
     Indication: PRODUCT USED FOR UNKNOWN INDICATION
     Route: 065
  11. RANITIDINE. [Concomitant]
     Active Substance: RANITIDINE
     Indication: PRODUCT USED FOR UNKNOWN INDICATION
     Route: 065
  12. COLYPAN [Concomitant]
     Active Substance: TRIMEBUTINE MALEATE
     Indication: PRODUCT USED FOR UNKNOWN INDICATION
     Dosage: UNK
     Route: 065
  13. ESOMEPRAZOLE. [Suspect]
     Active Substance: ESOMEPRAZOLE MAGNESIUM
     Indication: GASTRITIS
     Dosage: 20 MG, QD (ONE DAY IN BETWEEN (AS ANY OTHER DAY)) SINCE 2 YEARS AGO
     Route: 048
  14. PEPSAMAR [Concomitant]
     Indication: PRODUCT USED FOR UNKNOWN INDICATION
     Dosage: UNK
     Route: 065

REACTIONS (43)
  - Gastritis [Unknown]
  - Vulvovaginal burning sensation [Unknown]
  - Burning sensation [Unknown]
  - Limb injury [Recovering/Resolving]
  - Skin sensitisation [Recovering/Resolving]
  - Skin abrasion [Unknown]
  - Pharyngeal ulceration [Unknown]
  - Skin exfoliation [Unknown]
  - Diarrhoea [Recovering/Resolving]
  - Onychomadesis [Unknown]
  - Gastrointestinal bacterial infection [Unknown]
  - Breast cancer [Unknown]
  - Skin haemorrhage [Unknown]
  - Pain of skin [Recovering/Resolving]
  - Tongue exfoliation [Not Recovered/Not Resolved]
  - Skin atrophy [Unknown]
  - Pain in extremity [Unknown]
  - Paronychia [Recovering/Resolving]
  - Pyrexia [Unknown]
  - Headache [Unknown]
  - Decreased immune responsiveness [Unknown]
  - Malaise [Unknown]
  - Acne [Unknown]
  - Nail discolouration [Unknown]
  - Onychalgia [Unknown]
  - Gait disturbance [Unknown]
  - Localised infection [Recovering/Resolving]
  - Oral mucosal eruption [Unknown]
  - Skin burning sensation [Unknown]
  - Influenza [Unknown]
  - Nasal discomfort [Unknown]
  - Nail disorder [Recovering/Resolving]
  - Dyspepsia [Unknown]
  - Rash [Unknown]
  - Oral mucosal exfoliation [Not Recovered/Not Resolved]
  - Ingrowing nail [Recovering/Resolving]
  - Arthralgia [Unknown]
  - Abdominal pain upper [Unknown]
  - COVID-19 [Unknown]
  - Malignant neoplasm progression [Unknown]
  - Feeling of despair [Unknown]
  - Toxicity to various agents [Unknown]
  - Onychoclasis [Unknown]

NARRATIVE: CASE EVENT DATE: 20161207
